FAERS Safety Report 13896141 (Version 1)
Quarter: 2017Q3

REPORT INFORMATION
  Report Type: Spontaneous
  Country: US (occurrence: None)
  Receive Date: 20170816
  Receipt Date: 20170816
  Transmission Date: 20171127
  Serious: Yes (Other)
  Sender: FDA-Public Use
  Company Number: None

PATIENT
  Age: 56 Year
  Sex: Female
  Weight: 68.04 kg

DRUGS (4)
  1. SULFASALAZINE TABLETS USP 500 TABLETS RX ONLY [Suspect]
     Active Substance: SULFASALAZINE
     Indication: CROHN^S DISEASE
     Dosage: 2 PILLS, 4 TIMES, BY MOUTH
     Route: 048
     Dates: start: 20170703, end: 20170720
  2. MESALAMINE. [Concomitant]
     Active Substance: MESALAMINE
  3. TYLENOL [Concomitant]
     Active Substance: ACETAMINOPHEN
  4. FAMOTADINE [Concomitant]

REACTIONS (1)
  - Malaise [None]

NARRATIVE: CASE EVENT DATE: 20170707
